FAERS Safety Report 7754081-8 (Version None)
Quarter: 2011Q3

REPORT INFORMATION
  Report Type: 
  Country: None (occurrence: None)
  Receive Date: 20110915
  Receipt Date: 20110902
  Transmission Date: 20111222
  Serious: No
  Sender: FDA-Public Use
  Company Number: US-B.I. PHARMACEUTICALS,INC./RIDGEFIELD-2011-BP-21579BP

PATIENT
  Sex: Male

DRUGS (3)
  1. PRADAXA [Suspect]
  2. ASPIRIN [Concomitant]
  3. PLAVIX [Concomitant]
     Dates: end: 20110801

REACTIONS (2)
  - VERTIGO [None]
  - DIZZINESS [None]
